FAERS Safety Report 8505912-5 (Version None)
Quarter: 2012Q3

REPORT INFORMATION
  Report Type: 
  Country: None (occurrence: None)
  Receive Date: 20120712
  Receipt Date: 20120710
  Transmission Date: 20120928
  Serious: Yes (Life-Threatening, Other)
  Sender: FDA-Public Use
  Company Number: FR-009507513-1207FRA002349

PATIENT

DRUGS (5)
  1. XYZAL [Concomitant]
  2. SYMBICORT [Suspect]
     Dosage: UNK
     Route: 055
  3. SINGULAIR [Suspect]
     Dosage: 10 MG, QD
     Route: 048
  4. ISOTRETINOIN [Suspect]
     Dosage: 10 MG, QD
     Route: 048
     Dates: start: 20111201, end: 20120514
  5. AIROMIR [Concomitant]

REACTIONS (2)
  - DEPRESSION [None]
  - SUICIDE ATTEMPT [None]
